FAERS Safety Report 14694697 (Version 3)
Quarter: 2018Q2

REPORT INFORMATION
  Report Type: Spontaneous
  Country: US (occurrence: US)
  Receive Date: 20180329
  Receipt Date: 20180504
  Transmission Date: 20180711
  Serious: Yes (Hospitalization)
  Sender: FDA-Public Use
  Company Number: US-BAYER-2018-060501

PATIENT
  Age: 63 Year
  Sex: Female

DRUGS (2)
  1. CRESTOR [Concomitant]
     Active Substance: ROSUVASTATIN CALCIUM
     Dosage: 40 MG, UNK
  2. BETASERON [Suspect]
     Active Substance: INTERFERON BETA-1B
     Indication: MULTIPLE SCLEROSIS
     Dosage: 0.25 MG, QOD
     Route: 058

REACTIONS (5)
  - Peripheral swelling [None]
  - Erythema [None]
  - Product availability issue [None]
  - Vomiting [Recovering/Resolving]
  - Urinary tract infection [None]

NARRATIVE: CASE EVENT DATE: 201712
